FAERS Safety Report 20306536 (Version 1)
Quarter: 2022Q1

REPORT INFORMATION
  Report Type: Spontaneous
  Country: US (occurrence: US)
  Receive Date: 20220106
  Receipt Date: 20220106
  Transmission Date: 20220424
  Serious: Yes (Other)
  Sender: FDA-Public Use
  Company Number: US-PFIZER INC-202101871641

PATIENT
  Age: 63 Year
  Sex: Female
  Weight: 65.77 kg

DRUGS (2)
  1. CHANTIX [Suspect]
     Active Substance: VARENICLINE TARTRATE
     Indication: Smoking cessation therapy
     Dosage: UNK (SHE HAS BEEN FIGHTING CANCER FOR 4 YEARS NOW AND THAT^S ABOUT HOW LONG AGO SHE STARTED TAKING T
     Route: 048
     Dates: start: 2017
  2. CHANTIX [Suspect]
     Active Substance: VARENICLINE TARTRATE
     Dosage: 5 MG, 2X/DAY
     Route: 048

REACTIONS (1)
  - Bladder cancer [Unknown]
